FAERS Safety Report 5644515-7 (Version None)
Quarter: 2008Q1

REPORT INFORMATION
  Report Type: 
  Country: None (occurrence: None)
  Receive Date: 20080229
  Receipt Date: 20070207
  Transmission Date: 20080703
  Serious: No
  Sender: FDA-Public Use
  Company Number: A0638752A

PATIENT
  Age: 57 Year
  Sex: Female

DRUGS (8)
  1. VALTREX [Suspect]
     Indication: GENITAL HERPES
     Dosage: 500MG PER DAY
     Route: 048
  2. SYNTHROID [Concomitant]
  3. DOXYCLINE [Concomitant]
  4. ATENOLOL [Concomitant]
  5. HUMIRA [Concomitant]
  6. WELLBUTRIN [Concomitant]
  7. ALLEGRA [Concomitant]
  8. PREDNISONE TAB [Concomitant]

REACTIONS (1)
  - DRUG INEFFECTIVE [None]
